FAERS Safety Report 7359922-4 (Version None)
Quarter: 2011Q1

REPORT INFORMATION
  Report Type: 
  Country: None (occurrence: None)
  Receive Date: 20110317
  Receipt Date: 20110315
  Transmission Date: 20110831
  Serious: Yes (Other)
  Sender: FDA-Public Use
  Company Number: LV-PFIZER INC-2011057350

PATIENT
  Age: 74 Year
  Sex: Male
  Weight: 79 kg

DRUGS (8)
  1. SORTIS [Suspect]
     Indication: VASCULAR GRAFT
     Dosage: 80 MG, 1X/DAY
     Route: 048
     Dates: start: 20101001, end: 20101101
  2. SORTIS [Suspect]
     Dosage: 20 MG, 1X/DAY
     Route: 048
     Dates: start: 20110101
  3. PLAVIX [Concomitant]
     Dosage: 75 MG, UNK
     Dates: start: 20101001
  4. SORTIS [Suspect]
     Dosage: 20 MG, ALTERNATE DAY
     Route: 048
     Dates: start: 20101101, end: 20110101
  5. ASPIRIN [Concomitant]
     Dosage: UNK
     Route: 048
     Dates: start: 20101001
  6. PRESTARIUM [Concomitant]
     Dosage: 5 MG, UNK
     Route: 048
  7. SORTIS [Suspect]
     Dosage: 40 MG, ALTERNATE DAY
     Route: 048
     Dates: start: 20101101, end: 20110101
  8. BETALOC ZOK ^ASTRA^ [Concomitant]
     Dosage: UNK
     Route: 048
     Dates: start: 20101001, end: 20110201

REACTIONS (2)
  - WEIGHT DECREASED [None]
  - MUSCLE ATROPHY [None]
